FAERS Safety Report 9494603 (Version 2)
Quarter: 2013Q3

REPORT INFORMATION
  Report Type: Spontaneous
  Country: GB (occurrence: GB)
  Receive Date: 20130903
  Receipt Date: 20130912
  Transmission Date: 20140515
  Serious: Yes (Disabling, Other)
  Sender: FDA-Public Use
  Company Number: GB-PFIZER INC-2013250597

PATIENT
  Age: 44 Year
  Sex: 0

DRUGS (2)
  1. PHENYTOIN SODIUM [Suspect]
     Indication: EPILEPSY
     Dosage: 400MG, 1X/DAY AT NIGHT
     Route: 048
     Dates: start: 20130801, end: 20130809
  2. TEGRETOL RETARD [Concomitant]
     Indication: EPILEPSY
     Dosage: 400MG, LONG TERM
     Route: 048

REACTIONS (10)
  - Hypoaesthesia [Recovering/Resolving]
  - Muscle twitching [Recovering/Resolving]
  - Muscle spasms [Recovering/Resolving]
  - Pruritus [Recovering/Resolving]
  - Flushing [Recovering/Resolving]
  - Pyrexia [Recovering/Resolving]
  - Headache [Recovering/Resolving]
  - Sleep disorder [Recovering/Resolving]
  - Vision blurred [Recovering/Resolving]
  - Product substitution issue [Unknown]
